FAERS Safety Report 4980373-1 (Version None)
Quarter: 2006Q2

REPORT INFORMATION
  Report Type: 
  Country: None (occurrence: None)
  Receive Date: 20060421
  Receipt Date: 20060421
  Transmission Date: 20061013
  Serious: No
  Sender: FDA-Public Use
  Company Number: None

PATIENT
  Age: 34 Year
  Sex: Female

DRUGS (10)
  1. HEPARIN LOCK FLUSH [Suspect]
     Indication: THROMBOSIS PROPHYLAXIS
     Dosage: FLUSHES PRN VIA LINE
     Dates: start: 20060301
  2. HEPARIN LOCK FLUSH [Suspect]
     Indication: THROMBOSIS PROPHYLAXIS
     Dosage: FLUSHES PRN VIA LINE
     Dates: start: 20060302
  3. HEPARIN LOCK FLUSH [Suspect]
     Indication: THROMBOSIS PROPHYLAXIS
     Dosage: FLUSHES PRN VIA LINE
     Dates: start: 20060303
  4. ENOXAPARIN SODIUM [Suspect]
     Indication: THROMBOSIS PROPHYLAXIS
     Dosage: 40 MG SC Q 12H
     Route: 058
     Dates: start: 20060228
  5. ENOXAPARIN SODIUM [Suspect]
     Indication: THROMBOSIS PROPHYLAXIS
     Dosage: 40 MG SC Q 12H
     Route: 058
     Dates: start: 20060301
  6. ENOXAPARIN SODIUM [Suspect]
     Indication: THROMBOSIS PROPHYLAXIS
     Dosage: 40 MG SC Q 12H
     Route: 058
     Dates: start: 20060302
  7. ENOXAPARIN SODIUM [Suspect]
     Indication: THROMBOSIS PROPHYLAXIS
     Dosage: 40 MG SC Q 12H
     Route: 058
     Dates: start: 20060303
  8. PREVACID [Concomitant]
  9. RANITIDINE [Concomitant]
  10. MOTRIN [Concomitant]

REACTIONS (2)
  - HAEMATURIA [None]
  - PLATELET COUNT DECREASED [None]
